FAERS Safety Report 9873832 (Version 1)
Quarter: 2014Q1

REPORT INFORMATION
  Report Type: Spontaneous
  Country: US (occurrence: US)
  Receive Date: 20140206
  Receipt Date: 20140206
  Transmission Date: 20141002
  Serious: Yes (Hospitalization)
  Sender: FDA-Public Use
  Company Number: US-ROCHE-1345281

PATIENT
  Sex: Female

DRUGS (6)
  1. PERJETA [Suspect]
     Indication: HER-2 POSITIVE BREAST CANCER
     Route: 065
     Dates: start: 201310
  2. PERJETA [Suspect]
     Route: 065
     Dates: start: 20140109
  3. HERCEPTIN [Suspect]
     Indication: BREAST CANCER
     Route: 065
     Dates: start: 201310
  4. HERCEPTIN [Suspect]
     Route: 065
     Dates: start: 20140109
  5. TAXOTERE [Concomitant]
     Indication: BREAST CANCER
     Route: 065
     Dates: start: 201310
  6. TAXOTERE [Concomitant]
     Route: 065
     Dates: start: 201312

REACTIONS (1)
  - Renal failure acute [Unknown]
